FAERS Safety Report 4335754-6 (Version None)
Quarter: 2004Q2

REPORT INFORMATION
  Report Type: 
  Country: None (occurrence: None)
  Receive Date: 20040409
  Receipt Date: 20040402
  Transmission Date: 20050107
  Serious: Yes (Other)
  Sender: FDA-Public Use
  Company Number: PHNR2004AU00864

PATIENT
  Age: 35 Year
  Sex: Female

DRUGS (3)
  1. TEGRETOL [Suspect]
     Indication: PETIT MAL EPILEPSY
     Dosage: 400 MG MANE, 500 MG NOCTE
     Route: 048
     Dates: start: 19710101
  2. NEURONTIN [Concomitant]
  3. KEPPRA [Concomitant]
     Dates: start: 20031101

REACTIONS (3)
  - ARTHRALGIA [None]
  - CARPAL TUNNEL SYNDROME [None]
  - JOINT SWELLING [None]
